FAERS Safety Report 7919075-8 (Version None)
Quarter: 2011Q4

REPORT INFORMATION
  Report Type: 
  Country: None (occurrence: None)
  Receive Date: 20111116
  Receipt Date: 20111107
  Transmission Date: 20120403
  Serious: Yes (Hospitalization, Other)
  Sender: FDA-Public Use
  Company Number: US-ASTRAZENECA-2011SE41870

PATIENT
  Age: 29 Year
  Sex: Female
  Weight: 81.6 kg

DRUGS (2)
  1. SEROQUEL [Suspect]
     Indication: DEPRESSION
     Dosage: 50 MG BID AND 200 MG QHS
     Route: 048
  2. ZOLOFT [Concomitant]
     Indication: DEPRESSION
     Route: 048

REACTIONS (3)
  - DELUSION OF GRANDEUR [None]
  - SUICIDAL IDEATION [None]
  - PERSECUTORY DELUSION [None]
